FAERS Safety Report 6058712-2 (Version None)
Quarter: 2009Q1

REPORT INFORMATION
  Report Type: 
  Country: None (occurrence: None)
  Receive Date: 20090130
  Receipt Date: 20090126
  Transmission Date: 20090719
  Serious: Yes (Hospitalization)
  Sender: FDA-Public Use
  Company Number: FR-PURDUE-GBR_2009_0004795

PATIENT
  Age: 63 Year
  Sex: Male

DRUGS (8)
  1. MORPHINE [Suspect]
     Indication: ANALGESIA
     Dosage: 10 MG, SINGLE
     Route: 048
     Dates: start: 20081007
  2. COZAAR [Concomitant]
     Dosage: 50 MG, UNK
     Route: 065
  3. AMLOD [Suspect]
     Dosage: 5 MG, UNK
     Route: 065
  4. DURAGESIC-100 [Suspect]
     Indication: ANALGESIA
     Dosage: 25 MCG, DAILY
     Route: 062
     Dates: start: 20080621, end: 20081010
  5. DURAGESIC-100 [Suspect]
     Dosage: 2 HOURS AFTER 25 MCG DOSE
     Route: 062
     Dates: start: 20080621, end: 20081010
  6. NEXIUM [Concomitant]
     Dosage: 20 MG, UNK
     Route: 065
  7. FORLAX [Concomitant]
     Route: 065
  8. PREVISCAN [Concomitant]
     Dosage: UNK, UNK
     Route: 065

REACTIONS (4)
  - AGGRESSION [None]
  - BRIEF PSYCHOTIC DISORDER WITH MARKED STRESSORS [None]
  - HALLUCINATION, AUDITORY [None]
  - HALLUCINATION, VISUAL [None]
